FAERS Safety Report 5188025-2 (Version None)
Quarter: 2006Q4

REPORT INFORMATION
  Report Type: 
  Country: None (occurrence: None)
  Receive Date: 20061214
  Receipt Date: 20061214
  Transmission Date: 20070319
  Serious: No
  Sender: FDA-Public Use
  Company Number: None

PATIENT
  Age: 26 Year
  Sex: Female
  Weight: 131.5431 kg

DRUGS (1)
  1. CHANTIX [Suspect]
     Dosage: 1 MG 1 BID PO
     Route: 048
     Dates: start: 20061120, end: 20061213

REACTIONS (4)
  - CONTUSION [None]
  - DIZZINESS [None]
  - RASH MACULO-PAPULAR [None]
  - TENDERNESS [None]
